FAERS Safety Report 7098290-2 (Version None)
Quarter: 2010Q4

REPORT INFORMATION
  Report Type: 
  Country: None (occurrence: None)
  Receive Date: 20101112
  Receipt Date: 20100913
  Transmission Date: 20110411
  Serious: No
  Sender: FDA-Public Use
  Company Number: A0880849A

PATIENT
  Sex: Female

DRUGS (1)
  1. TREXIMET [Suspect]
     Indication: HEADACHE
     Dosage: 1TAB SINGLE DOSE
     Route: 048
     Dates: start: 20100913, end: 20100913

REACTIONS (1)
  - PRURITUS [None]
